FAERS Safety Report 8543902-7 (Version None)
Quarter: 2012Q3

REPORT INFORMATION
  Report Type: 
  Country: None (occurrence: None)
  Receive Date: 20120727
  Receipt Date: 20120727
  Transmission Date: 20120928
  Serious: Yes (Hospitalization)
  Sender: FDA-Public Use
  Company Number: FR-PFIZER INC-2012172962

PATIENT
  Age: 61 Year
  Sex: Female

DRUGS (3)
  1. TACROLIMUS [Suspect]
     Dosage: 3 UG, 1X/DAY
     Route: 048
     Dates: start: 20070101
  2. PROPRANOLOL [Suspect]
     Dosage: 40 MG, 1X/DAY
     Route: 048
  3. AMLODIPINE BESYLATE [Suspect]
     Dosage: 5 MG, 1X/DAY
     Route: 048

REACTIONS (2)
  - TREMOR [None]
  - MUSCULAR WEAKNESS [None]
